FAERS Safety Report 22383117 (Version 1)
Quarter: 2023Q2

REPORT INFORMATION
  Report Type: Report from Study
  Country: BR (occurrence: BR)
  Receive Date: 20230530
  Receipt Date: 20230530
  Transmission Date: 20230721
  Serious: Yes (Hospitalization)
  Sender: FDA-Public Use
  Company Number: BR-BIOGEN-2023BI01207708

PATIENT
  Sex: Female
  Weight: 69 kg

DRUGS (4)
  1. TYSABRI [Suspect]
     Active Substance: NATALIZUMAB
     Indication: Multiple sclerosis
     Route: 050
  2. TYSABRI [Suspect]
     Active Substance: NATALIZUMAB
     Route: 050
  3. RISPERIDONE [Suspect]
     Active Substance: RISPERIDONE
     Indication: General symptom
     Route: 050
     Dates: end: 202302
  4. FLUOXETINE [Concomitant]
     Active Substance: FLUOXETINE HYDROCHLORIDE
     Indication: Insomnia
     Route: 050
     Dates: start: 202304

REACTIONS (3)
  - Psychotic disorder [Recovered/Resolved]
  - Gait inability [Recovered/Resolved]
  - Motor dysfunction [Recovered/Resolved]

NARRATIVE: CASE EVENT DATE: 20220101
